FAERS Safety Report 7282598-1 (Version None)
Quarter: 2011Q1

REPORT INFORMATION
  Report Type: 
  Country: None (occurrence: None)
  Receive Date: 20110209
  Receipt Date: 20110203
  Transmission Date: 20110831
  Serious: Yes (Death, Other)
  Sender: FDA-Public Use
  Company Number: US-PFIZER INC-2010153403

PATIENT
  Sex: Male

DRUGS (1)
  1. CHANTIX [Suspect]
     Indication: SMOKING CESSATION THERAPY
     Dosage: 0.5 MG/1MG, UNK
     Dates: start: 20070701, end: 20071101

REACTIONS (5)
  - DEPRESSION [None]
  - AGITATION [None]
  - COMPLETED SUICIDE [None]
  - INSOMNIA [None]
  - ANXIETY [None]
